FAERS Safety Report 9953640 (Version 1)
Quarter: 2014Q1

REPORT INFORMATION
  Report Type: Spontaneous
  Country: US (occurrence: US)
  Receive Date: 20140304
  Receipt Date: 20140304
  Transmission Date: 20141002
  Serious: No
  Sender: FDA-Public Use
  Company Number: US-AMGEN-USASP2014000266

PATIENT
  Age: 55 Year
  Sex: Female
  Weight: 79.37 kg

DRUGS (21)
  1. ENBREL [Suspect]
     Indication: PRODUCT USED FOR UNKNOWN INDICATION
     Dosage: 50 MG, QWK
     Route: 058
     Dates: start: 201308
  2. CENTRUM SILVER                     /07431401/ [Concomitant]
     Dosage: UNK
  3. ZOLOFT [Concomitant]
     Dosage: 50 MG, UNK
  4. MELOXICAM [Concomitant]
     Dosage: 15 MG, UNK
  5. METHOTREXATE [Concomitant]
     Dosage: 2.5 MG, UNK
  6. PREDNISONE [Concomitant]
     Dosage: 5 MG, UNK
  7. CHANTIX [Concomitant]
     Dosage: 1 MG, UNK
  8. ZYRTEC [Concomitant]
     Dosage: 10 MG, UNK
  9. PROCARDIA                          /00340701/ [Concomitant]
     Dosage: 10 MG, UNK
  10. NASAL SPRAY II [Concomitant]
     Dosage: 0.05 %, 12 HOUR
  11. CITRUCEL [Concomitant]
     Dosage: 500 MG, UNK
  12. VALIUM [Concomitant]
     Dosage: 2 MG, UNK
  13. VITAMIN E                          /00110501/ [Concomitant]
     Dosage: 1000 UNIT, UNK
  14. TEMAZEPAM [Concomitant]
     Dosage: 15 MG, UNK
  15. SEROQUEL [Concomitant]
     Dosage: 100 MG, UNK
  16. OXYCODONE [Concomitant]
     Dosage: 5 MG, UNK
  17. VITAMIN D                          /00107901/ [Concomitant]
     Dosage: 1000 UNIT, UNK
  18. FOLIC ACID [Concomitant]
     Dosage: 20 MG, UNK
  19. OMEGA 3                            /01333901/ [Concomitant]
     Dosage: 1000 MG, UNK
  20. TRIAMTEREEN/HYDROCHLOORTHIAZIDE [Concomitant]
     Dosage: 37.5-25 UNK, UNK
  21. GINKOBA [Concomitant]
     Dosage: 40 MG, UNK

REACTIONS (4)
  - Increased tendency to bruise [Unknown]
  - Rash erythematous [Unknown]
  - Sputum discoloured [Unknown]
  - Epistaxis [Unknown]
